FAERS Safety Report 6942123-9 (Version None)
Quarter: 2010Q3

REPORT INFORMATION
  Report Type: 
  Country: None (occurrence: None)
  Receive Date: 20100820
  Receipt Date: 20100731
  Transmission Date: 20110219
  Serious: Yes (Other)
  Sender: FDA-Public Use
  Company Number: 2280705-2010-00010

PATIENT
  Sex: Female

DRUGS (1)
  1. ORAJEL MAXIUM STRENGTH ORAL PAIN RELIEVER [Suspect]
     Dosage: APPLIED INSIDE MOUTH.
     Dates: end: 20100701

REACTIONS (5)
  - APPLICATION SITE SWELLING [None]
  - HYPOPHAGIA [None]
  - OEDEMA MOUTH [None]
  - OLIGODIPSIA [None]
  - ORAL MUCOSAL EXFOLIATION [None]
